FAERS Safety Report 19954050 (Version 3)
Quarter: 2022Q1

REPORT INFORMATION
  Report Type: Report from Study
  Country: CO (occurrence: CO)
  Receive Date: 20211014
  Receipt Date: 20220301
  Transmission Date: 20220423
  Serious: Yes (Other)
  Sender: FDA-Public Use
  Company Number: NVSC2021CO149200

PATIENT
  Age: 57 Year
  Sex: Female
  Weight: 51 kg

DRUGS (2)
  1. COSENTYX [Suspect]
     Active Substance: SECUKINUMAB
     Indication: Psoriasis
     Dosage: 150 MG, QMO
     Route: 058
  2. COSENTYX [Suspect]
     Active Substance: SECUKINUMAB
     Dosage: 300 MG, QMO
     Route: 058

REACTIONS (10)
  - Paralysis [Unknown]
  - Illness [Unknown]
  - Limb discomfort [Unknown]
  - Peripheral swelling [Unknown]
  - Gait inability [Unknown]
  - Skin exfoliation [Unknown]
  - Rash [Unknown]
  - Visual impairment [Unknown]
  - Pain in extremity [Unknown]
  - Drug ineffective [Unknown]

NARRATIVE: CASE EVENT DATE: 20210612
